FAERS Safety Report 5020442-3 (Version None)
Quarter: 2006Q2

REPORT INFORMATION
  Report Type: 
  Country: None (occurrence: None)
  Receive Date: 20060606
  Receipt Date: 20060531
  Transmission Date: 20061013
  Serious: Yes (Hospitalization)
  Sender: FDA-Public Use
  Company Number: SU-2006-005001

PATIENT
  Age: 63 Year
  Sex: Female
  Weight: 70.3075 kg

DRUGS (5)
  1. BENICAR [Suspect]
     Indication: BLOOD PRESSURE
     Dosage: 40 MG QD PO
     Route: 048
     Dates: end: 20060531
  2. FEXOFENADINE [Concomitant]
  3. FLUXETINE [Concomitant]
  4. MOBIC [Concomitant]
  5. SKELAXIN [Concomitant]

REACTIONS (3)
  - CHILLS [None]
  - COELIAC DISEASE [None]
  - PYREXIA [None]
